FAERS Safety Report 6871405-4 (Version None)
Quarter: 2010Q3

REPORT INFORMATION
  Report Type: 
  Country: None (occurrence: None)
  Receive Date: 20100723
  Receipt Date: 20100719
  Transmission Date: 20110219
  Serious: Yes (Other)
  Sender: FDA-Public Use
  Company Number: US-CEPHALON-2010003485

PATIENT
  Sex: Male
  Weight: 89 kg

DRUGS (3)
  1. NUVIGIL [Suspect]
     Indication: SLEEP APNOEA SYNDROME
     Route: 048
     Dates: start: 20100224, end: 20100602
  2. NUVIGIL [Suspect]
     Route: 048
     Dates: start: 20100602, end: 20100622
  3. EFFEXOR XR [Concomitant]
     Route: 048

REACTIONS (2)
  - DRUG INEFFECTIVE [None]
  - PSYCHOTIC DISORDER [None]
